FAERS Safety Report 9697578 (Version 2)
Quarter: 2013Q4

REPORT INFORMATION
  Report Type: Spontaneous
  Country: CA (occurrence: CA)
  Receive Date: 20131120
  Receipt Date: 20131122
  Transmission Date: 20140711
  Serious: Yes (Disabling)
  Sender: FDA-Public Use
  Company Number: CA-INCYTE CORPORATION-2013IN002695

PATIENT
  Age: 66 Year
  Sex: Female

DRUGS (4)
  1. JAKAVI [Suspect]
     Indication: MYELOFIBROSIS
     Dosage: 15 MG, BID
     Route: 048
     Dates: start: 20121107, end: 20131107
  2. BUDESONIDE [Concomitant]
     Dosage: SOLUTION, UNK
  3. TACROLIMUS [Concomitant]
     Dosage: SOLUTION, UNK
  4. PREDNISONE [Concomitant]
     Dosage: UNK

REACTIONS (1)
  - Graft versus host disease [Not Recovered/Not Resolved]
